FAERS Safety Report 7771647-X (Version None)
Quarter: 2011Q3

REPORT INFORMATION
  Report Type: 
  Country: None (occurrence: None)
  Receive Date: 20110922
  Receipt Date: 20100811
  Transmission Date: 20111222
  Serious: No
  Sender: FDA-Public Use
  Company Number: US-ASTRAZENECA-2007UW25221

PATIENT
  Age: 763 Month
  Sex: Female
  Weight: 99.8 kg

DRUGS (13)
  1. PAXIL [Concomitant]
     Dosage: 25 - 40 MG DAILY AT NIGHT
     Route: 048
     Dates: start: 19960930
  2. HYDROCHLOROTHIAZIDE [Concomitant]
     Dates: start: 19960930
  3. RISPERDAL [Concomitant]
     Indication: DEPRESSION
     Dates: start: 19960101
  4. SEROQUEL [Suspect]
     Indication: SCHIZOPHRENIA
     Route: 048
     Dates: start: 19960801, end: 20070301
  5. SEROQUEL [Suspect]
     Indication: ANXIETY
     Route: 048
     Dates: start: 19960801, end: 20070301
  6. SEROQUEL [Suspect]
     Indication: DEPRESSION
     Route: 048
     Dates: start: 19960801, end: 20070301
  7. SEROQUEL [Suspect]
     Dosage: 25 - 300 MG DAILY
     Route: 048
     Dates: start: 20000818, end: 20070521
  8. SEROQUEL [Suspect]
     Dosage: 25 - 300 MG DAILY
     Route: 048
     Dates: start: 20000818, end: 20070521
  9. RISPERDAL [Concomitant]
     Indication: SCHIZOPHRENIA
     Dates: start: 19960101
  10. TRAZODONE HYDROCHLORIDE [Concomitant]
     Dosage: 100 - 200 MG DAILY AT NIGHT
     Route: 048
     Dates: start: 19960930
  11. RISPERDAL [Concomitant]
     Indication: ANXIETY
     Dates: start: 19960101
  12. SEROQUEL [Suspect]
     Dosage: 25 - 300 MG DAILY
     Route: 048
     Dates: start: 20000818, end: 20070521
  13. HALDOL [Concomitant]
     Dosage: 0.5 - 1.5 MG DAILY AT NIGHT
     Route: 048
     Dates: start: 19960930

REACTIONS (3)
  - OBESITY [None]
  - DIABETIC COMPLICATION [None]
  - TYPE 2 DIABETES MELLITUS [None]
